FAERS Safety Report 9179858 (Version 1)
Quarter: 2013Q1

REPORT INFORMATION
  Report Type: Spontaneous
  Country: US (occurrence: US)
  Receive Date: 20130321
  Receipt Date: 20130321
  Transmission Date: 20140127
  Serious: Yes (Death)
  Sender: FDA-Public Use
  Company Number: CHPA2013US005019

PATIENT
  Age: 88 Year
  Sex: Female

DRUGS (1)
  1. TRIAMINIC [Suspect]
     Indication: COUGH
     Dosage: UNK, UNK, ON AND OFF FOR 2YRS
     Route: 048
     Dates: end: 2006

REACTIONS (1)
  - Death [Fatal]
